FAERS Safety Report 18797543 (Version 1)
Quarter: 2021Q1

REPORT INFORMATION
  Report Type: Spontaneous
  Country: US (occurrence: US)
  Receive Date: 20210128
  Receipt Date: 20210128
  Transmission Date: 20210419
  Serious: No
  Sender: FDA-Public Use
  Company Number: US-CIPLA LTD.-2020US07679

PATIENT

DRUGS (3)
  1. SALBUTAMOL [Suspect]
     Active Substance: ALBUTEROL
     Indication: DYSPNOEA
     Dosage: UNK, TRIED TO USE DOUBLE PUFFS
     Dates: start: 202010
  2. SALBUTAMOL [Suspect]
     Active Substance: ALBUTEROL
     Indication: CHRONIC OBSTRUCTIVE PULMONARY DISEASE
     Dosage: UNK
     Dates: start: 20201001, end: 20201020
  3. SALBUTAMOL [Suspect]
     Active Substance: ALBUTEROL
     Dosage: UNK, TRIED TO USE DOUBE PUFFS
     Dates: start: 20201020, end: 20201020

REACTIONS (6)
  - Device malfunction [Unknown]
  - Product substitution issue [Unknown]
  - Drug effect less than expected [Unknown]
  - Drug delivery system issue [Unknown]
  - Product container seal issue [Unknown]
  - Product label issue [Unknown]

NARRATIVE: CASE EVENT DATE: 202010
